FAERS Safety Report 21414672 (Version 5)
Quarter: 2025Q1

REPORT INFORMATION
  Report Type: Report from Study
  Country: US (occurrence: US)
  Receive Date: 20221006
  Receipt Date: 20250130
  Transmission Date: 20250409
  Serious: Yes (Hospitalization, Other)
  Sender: TAKEDA
  Company Number: US-TAKEDA-2022TUS046995

PATIENT
  Age: 55 Year
  Sex: Female

DRUGS (5)
  1. LANADELUMAB [Suspect]
     Active Substance: LANADELUMAB
     Indication: Hereditary angioedema
  2. LANADELUMAB [Suspect]
     Active Substance: LANADELUMAB
     Dosage: UNK UNK, Q2WEEKS
  3. LANADELUMAB [Suspect]
     Active Substance: LANADELUMAB
  4. INFLUENZA VIRUS VACCINE [Suspect]
     Active Substance: INFLUENZA VIRUS VACCINE
     Indication: Product used for unknown indication
  5. COVID-19 VACCINE NOS [Suspect]
     Active Substance: COVID-19 VACCINE
     Indication: Product used for unknown indication

REACTIONS (9)
  - Skin laceration [Recovering/Resolving]
  - Haemorrhage [Recovering/Resolving]
  - Nerve injury [Recovering/Resolving]
  - Menopausal symptoms [Unknown]
  - Road traffic accident [Unknown]
  - COVID-19 [Unknown]
  - Malaise [Unknown]
  - Nasopharyngitis [Unknown]
  - Hereditary angioedema [Recovered/Resolved]

NARRATIVE: CASE EVENT DATE: 20250124
